FAERS Safety Report 9659370 (Version 3)
Quarter: 2013Q4

REPORT INFORMATION
  Report Type: Spontaneous
  Country: IT (occurrence: IT)
  Receive Date: 20131031
  Receipt Date: 20131127
  Transmission Date: 20140711
  Serious: Yes (Other)
  Sender: FDA-Public Use
  Company Number: IT-JNJFOC-20131016844

PATIENT
  Age: 49 Year
  Sex: Female
  Weight: 80 kg

DRUGS (3)
  1. HALDOL [Suspect]
     Indication: PRODUCT USED FOR UNKNOWN INDICATION
     Route: 048
     Dates: start: 20131027, end: 20131027
  2. TAVOR [Suspect]
     Indication: PRODUCT USED FOR UNKNOWN INDICATION
     Route: 048
     Dates: start: 20131027, end: 20131027
  3. AMOXICILLIN TRIHYDRATE [Suspect]
     Indication: PRODUCT USED FOR UNKNOWN INDICATION
     Route: 048
     Dates: start: 20131027, end: 20131027

REACTIONS (4)
  - Self injurious behaviour [Unknown]
  - Intentional overdose [Unknown]
  - Drug abuse [Unknown]
  - Asthenia [Unknown]
